FAERS Safety Report 11745158 (Version 1)
Quarter: 2015Q4

REPORT INFORMATION
  Report Type: Spontaneous
  Country: US (occurrence: US)
  Receive Date: 20151117
  Receipt Date: 20151117
  Transmission Date: 20160304
  Serious: No
  Sender: FDA-Public Use
  Company Number: US-IROKO PHARMACEUTICALS LLC-US-I09001-15-00112

PATIENT
  Age: 49 Year
  Sex: Female

DRUGS (1)
  1. ZORVOLEX [Suspect]
     Active Substance: DICLOFENAC
     Indication: BACK PAIN
     Route: 048
     Dates: start: 201507, end: 20150716

REACTIONS (3)
  - Abdominal distension [Recovered/Resolved]
  - Peripheral swelling [Recovered/Resolved]
  - Pain [Unknown]

NARRATIVE: CASE EVENT DATE: 20150701
